FAERS Safety Report 4296621-X (Version None)
Quarter: 2004Q1

REPORT INFORMATION
  Report Type: 
  Country: None (occurrence: None)
  Receive Date: 20040126
  Receipt Date: 20030902
  Transmission Date: 20041129
  Serious: No
  Sender: FDA-Public Use
  Company Number: USA030945987

PATIENT
  Age: 29 Year
  Sex: Female

DRUGS (2)
  1. STRATTERA [Suspect]
     Indication: ATTENTION DEFICIT/HYPERACTIVITY DISORDER
     Dosage: 40MG/DAY
     Dates: start: 20030826
  2. AYGESTIN [Concomitant]

REACTIONS (2)
  - BACK PAIN [None]
  - UTERINE PAIN [None]
